FAERS Safety Report 21284436 (Version 1)
Quarter: 2022Q3

REPORT INFORMATION
  Report Type: Spontaneous
  Country: US (occurrence: US)
  Receive Date: 20220902
  Receipt Date: 20220902
  Transmission Date: 20221026
  Serious: No
  Sender: FDA-Public Use
  Company Number: US-BRISTOL-MYERS SQUIBB COMPANY-2022-097963

PATIENT
  Age: 83 Year
  Sex: Male

DRUGS (6)
  1. ORENCIA [Suspect]
     Active Substance: ABATACEPT
     Indication: Rheumatoid arthritis
     Dosage: DOSE : 750MG;     FREQ : EVERY 4 WEEKS?STRENGTH AND PRESENTATION OF THE AE : 250MG VIAL
     Route: 042
  2. ELIQUIS [Concomitant]
     Active Substance: APIXABAN
  3. AVODART [Concomitant]
     Active Substance: DUTASTERIDE
  4. METOPROLOL [Concomitant]
     Active Substance: METOPROLOL
  5. ROSUVASTATIN [Concomitant]
     Active Substance: ROSUVASTATIN
  6. METHOTREXATE [Concomitant]
     Active Substance: METHOTREXATE

REACTIONS (1)
  - Adverse event [Unknown]
